FAERS Safety Report 18188713 (Version 3)
Quarter: 2020Q3

REPORT INFORMATION
  Report Type: Report from Study
  Country: BR (occurrence: BR)
  Receive Date: 20200824
  Receipt Date: 20200828
  Transmission Date: 20201103
  Serious: Yes (Hospitalization, Disabling)
  Sender: FDA-Public Use
  Company Number: BR-BIOGEN-2019BI00731921

PATIENT
  Age: 53 Year
  Sex: Female

DRUGS (5)
  1. TYSABRI [Suspect]
     Active Substance: NATALIZUMAB
     Route: 065
     Dates: end: 20200731
  2. TYSABRI [Suspect]
     Active Substance: NATALIZUMAB
     Indication: MULTIPLE SCLEROSIS
     Dosage: INFUSED FOR OVER 1 HOUR
     Route: 042
     Dates: start: 201507, end: 20190423
  3. FLUXON (CINNARIZINE) [Concomitant]
     Indication: PRODUCT USED FOR UNKNOWN INDICATION
     Route: 065
  4. TYSABRI [Suspect]
     Active Substance: NATALIZUMAB
     Route: 042
     Dates: start: 201507
  5. TYSABRI [Suspect]
     Active Substance: NATALIZUMAB
     Route: 042
     Dates: start: 201501

REACTIONS (22)
  - Pain [Unknown]
  - Dysphonia [Not Recovered/Not Resolved]
  - Viral infection [Recovered/Resolved]
  - Balance disorder [Not Recovered/Not Resolved]
  - Bacterial infection [Recovered/Resolved]
  - Increased bronchial secretion [Not Recovered/Not Resolved]
  - Paraesthesia [Not Recovered/Not Resolved]
  - Coordination abnormal [Not Recovered/Not Resolved]
  - Anxiety [Not Recovered/Not Resolved]
  - Motor dysfunction [Not Recovered/Not Resolved]
  - Pneumonia [Recovered/Resolved]
  - Cough [Not Recovered/Not Resolved]
  - Feeling hot [Not Recovered/Not Resolved]
  - Asthenia [Not Recovered/Not Resolved]
  - Dysstasia [Unknown]
  - Trigeminal neuralgia [Not Recovered/Not Resolved]
  - Decreased immune responsiveness [Unknown]
  - Obesity [Not Recovered/Not Resolved]
  - Gait inability [Unknown]
  - Aphonia [Not Recovered/Not Resolved]
  - Influenza [Recovered/Resolved]
  - Fall [Recovered/Resolved]

NARRATIVE: CASE EVENT DATE: 2016
